FAERS Safety Report 19467582 (Version 1)
Quarter: 2021Q2

REPORT INFORMATION
  Report Type: Report from Study
  Country: KR (occurrence: KR)
  Receive Date: 20210628
  Receipt Date: 20210628
  Transmission Date: 20210717
  Serious: Yes (Hospitalization)
  Sender: FDA-Public Use
  Company Number: KR-ROCHE-2849544

PATIENT
  Age: 65 Year
  Sex: Male
  Weight: 76.65 kg

DRUGS (19)
  1. COLCHICINE. [Concomitant]
     Active Substance: COLCHICINE
     Indication: GOUT
     Route: 048
     Dates: start: 1998
  2. PRINA [Concomitant]
     Indication: GOUT
     Route: 048
     Dates: start: 1998
  3. ITOPRIDE [Concomitant]
     Active Substance: ITOPRIDE
     Indication: GASTRITIS
     Route: 048
     Dates: start: 20210202
  4. OSARTAN [Concomitant]
     Active Substance: LOSARTAN POTASSIUM
     Indication: HYPERTENSION
     Route: 048
     Dates: start: 2010
  5. RAMOSETRON HCL [Concomitant]
     Active Substance: RAMOSETRON HYDROCHLORIDE
     Route: 042
     Dates: start: 20201229
  6. ATEZOLIZUMAB. [Suspect]
     Active Substance: ATEZOLIZUMAB
     Indication: SMALL CELL LUNG CANCER EXTENSIVE STAGE
     Dosage: START DATE OF MOST RECENT DOSE OF STUDY DRUG PRIOR TO AE/SAE: 01/JUN/2021?DOSE LAST STUDY DRUG ADMIN
     Route: 042
     Dates: start: 20201229
  7. FAMOTIDINE. [Concomitant]
     Active Substance: FAMOTIDINE
     Indication: GASTRITIS
     Route: 048
     Dates: start: 20210219
  8. CHLORHEXIDIN [Concomitant]
     Active Substance: CHLORHEXIDINE
     Route: 061
     Dates: start: 20210126
  9. BEARSE [Concomitant]
     Active Substance: DIMETHICONE\PANCRELIPASE\URSODIOL
     Indication: GASTRITIS
     Route: 048
     Dates: start: 20210202
  10. BLINDED TIRAGOLUMAB [Suspect]
     Active Substance: TIRAGOLUMAB
     Indication: SMALL CELL LUNG CANCER EXTENSIVE STAGE
     Dosage: START DATE OF MOST RECENT DOSE OF STUDY DRUG PRIOR TO AE/SAE: 01/JUN/2021
     Route: 042
     Dates: start: 20201229
  11. CARBOPLATIN. [Suspect]
     Active Substance: CARBOPLATIN
     Indication: SMALL CELL LUNG CANCER EXTENSIVE STAGE
     Dosage: DOSE LAST STUDY DRUG ADMIN PRIOR AE/SAE: 468.7 MG?START DATE OF MOST RECENT DOSE OF STUDY DRUG PRIOR
     Route: 042
     Dates: start: 20201229
  12. RAMOSETRON HCL [Concomitant]
     Active Substance: RAMOSETRON HYDROCHLORIDE
     Route: 048
     Dates: start: 20201229
  13. ETOPOSIDE. [Suspect]
     Active Substance: ETOPOSIDE
     Indication: SMALL CELL LUNG CANCER EXTENSIVE STAGE
     Dosage: DOSE LAST STUDY DRUG ADMIN PRIOR AE/SAE: 193 MG?START DATE OF MOST RECENT DOSE OF STUDY DRUG PRIOR T
     Route: 042
     Dates: start: 20201229
  14. DICHLOZID [Concomitant]
     Indication: HYPERTENSION
     Route: 048
     Dates: start: 2010
  15. MEGESTROL [Concomitant]
     Active Substance: MEGESTROL
     Indication: DECREASED APPETITE
     Route: 048
  16. FEBURIC [Concomitant]
     Active Substance: FEBUXOSTAT
     Indication: GOUT
     Route: 048
  17. SOLONDO [Concomitant]
     Active Substance: PREDNISOLONE
     Indication: GOUT
     Route: 048
     Dates: start: 1998
  18. URININ [Concomitant]
     Indication: GOUT
     Route: 048
     Dates: start: 1998
  19. INDOMETA [Concomitant]
     Indication: GOUT
     Route: 048
     Dates: start: 1998

REACTIONS (1)
  - Diabetes mellitus [Not Recovered/Not Resolved]

NARRATIVE: CASE EVENT DATE: 20210613
